FAERS Safety Report 8935477 (Version 1)
Quarter: 2012Q4

REPORT INFORMATION
  Report Type: Spontaneous
  Country: US (occurrence: None)
  Receive Date: 20121128
  Receipt Date: 20121128
  Transmission Date: 20130627
  Serious: Yes (Hospitalization)
  Sender: FDA-Public Use
  Company Number: None

PATIENT
  Age: 91 Year
  Sex: Female
  Weight: 56 kg

DRUGS (10)
  1. CILOSTAZOL [Suspect]
     Indication: PERIPHERAL ARTERIAL DISEASE
     Route: 048
  2. PLAVIX [Concomitant]
     Route: 048
  3. ULTRAM [Concomitant]
  4. MVI [Concomitant]
  5. FISH OIL [Concomitant]
  6. COREG [Concomitant]
  7. VIT D [Concomitant]
  8. DIGOXIN [Concomitant]
  9. KEPPRA [Concomitant]
  10. PRAVACHOL [Concomitant]

REACTIONS (5)
  - Fall [None]
  - Head injury [None]
  - Laceration [None]
  - Haemorrhagic anaemia [None]
  - Haemorrhage intracranial [None]
